FAERS Safety Report 14923978 (Version 1)
Quarter: 2018Q2

REPORT INFORMATION
  Report Type: Spontaneous
  Country: FR (occurrence: FR)
  Receive Date: 20180522
  Receipt Date: 20180522
  Transmission Date: 20180711
  Serious: Yes (Hospitalization)
  Sender: FDA-Public Use
  Company Number: FR-TEVA-2018-FR-894451

PATIENT
  Age: 54 Year
  Sex: Female
  Weight: 80 kg

DRUGS (14)
  1. SKENAN [Suspect]
     Active Substance: MORPHINE SULFATE
     Indication: PAIN
     Dosage: 1 DOSAGE FORMS DAILY;
     Route: 048
  2. SKENAN [Suspect]
     Active Substance: MORPHINE SULFATE
     Route: 048
  3. LANTUS 100 UNITS/ML, INJECTION SOLUTION IN PRE-FILLED PEN [Concomitant]
     Dosage: 17 IU (INTERNATIONAL UNIT) DAILY;
     Route: 058
  4. METFORMIN [Suspect]
     Active Substance: METFORMIN HYDROCHLORIDE
     Indication: TYPE 1 DIABETES MELLITUS
     Dosage: 850 MILLIGRAM DAILY;
     Route: 048
  5. AMLOR 10 MG, CAPSULE [Concomitant]
     Dosage: 1 DOSAGE FORMS DAILY;
     Route: 048
  6. LASILIX 40 MG, SCORED TABLET [Concomitant]
     Dosage: 1 DOSAGE FORMS DAILY;
     Route: 048
  7. INEXIUM 20 MG, GASTRO-RESISTANT TABLET [Concomitant]
     Active Substance: ESOMEPRAZOLE MAGNESIUM
     Dosage: 1 DOSAGE FORMS DAILY;
     Route: 048
  8. SEROPRAM 20 MG, TABLET COATED SCORED [Concomitant]
     Dosage: 1 DOSAGE FORMS DAILY;
     Route: 048
  9. ACECLOFENAC [Suspect]
     Active Substance: ACECLOFENAC
     Indication: PAIN
     Dosage: 100 MILLIGRAM DAILY;
     Route: 048
  10. ZOCOR 20 MG, SCORED COATED TABLET [Concomitant]
     Dosage: 1 DOSAGE FORMS DAILY;
     Route: 048
  11. LEVOTHYROX 100 MICROGRAMS, TABLET SCORED [Concomitant]
     Dosage: 1 DOSAGE FORMS DAILY;
     Route: 048
  12. ACTISKENAN 5 MG, CAPSULE [Suspect]
     Active Substance: MORPHINE SULFATE
     Indication: PAIN
     Route: 048
  13. BISOPROLOL (FUMARATE ACIDE DE) [Concomitant]
     Active Substance: BISOPROLOL FUMARATE
     Dosage: 1 DOSAGE FORMS DAILY;
     Route: 048
  14. FORTZAAR 100 MG/12.5 MG, COATED TABLET [Concomitant]
     Dosage: 1 DOSAGE FORMS DAILY;
     Route: 048

REACTIONS (4)
  - Acute kidney injury [Recovered/Resolved]
  - Coma [Recovered/Resolved]
  - Lactic acidosis [Recovered/Resolved]
  - Hyperkalaemia [Recovered/Resolved]

NARRATIVE: CASE EVENT DATE: 20171121
